FAERS Safety Report 20024416 (Version 5)
Quarter: 2023Q4

REPORT INFORMATION
  Report Type: Report from Study
  Country: CA (occurrence: CA)
  Receive Date: 20211102
  Receipt Date: 20231229
  Transmission Date: 20240110
  Serious: Yes (Other)
  Sender: FDA-Public Use
  Company Number: CA-TAKEDA-2017TUS024811

PATIENT
  Age: 73 Year
  Sex: Female

DRUGS (23)
  1. VEDOLIZUMAB [Suspect]
     Active Substance: VEDOLIZUMAB
     Indication: Crohn^s disease
     Dosage: 300 MILLIGRAM
     Route: 042
     Dates: start: 20171108
  2. VEDOLIZUMAB [Suspect]
     Active Substance: VEDOLIZUMAB
     Dosage: 300 MILLIGRAM
     Route: 042
  3. VEDOLIZUMAB [Suspect]
     Active Substance: VEDOLIZUMAB
     Dosage: 300 MILLIGRAM
     Route: 042
  4. VEDOLIZUMAB [Suspect]
     Active Substance: VEDOLIZUMAB
     Dosage: 300 MILLIGRAM
     Route: 042
  5. VEDOLIZUMAB [Suspect]
     Active Substance: VEDOLIZUMAB
     Dosage: 300 MILLIGRAM
     Route: 042
  6. VEDOLIZUMAB [Suspect]
     Active Substance: VEDOLIZUMAB
     Dosage: 300 MILLIGRAM, Q4WEEKS
     Route: 042
  7. VEDOLIZUMAB [Suspect]
     Active Substance: VEDOLIZUMAB
     Dosage: 300 MILLIGRAM
     Route: 042
  8. VEDOLIZUMAB [Suspect]
     Active Substance: VEDOLIZUMAB
     Dosage: 300 MILLIGRAM
     Route: 042
  9. VEDOLIZUMAB [Suspect]
     Active Substance: VEDOLIZUMAB
     Dosage: 300 MILLIGRAM
     Route: 042
  10. VEDOLIZUMAB [Suspect]
     Active Substance: VEDOLIZUMAB
     Dosage: 300 MILLIGRAM
     Route: 042
  11. VEDOLIZUMAB [Suspect]
     Active Substance: VEDOLIZUMAB
     Dosage: 300 MILLIGRAM
     Route: 042
  12. FORTEO [Suspect]
     Active Substance: TERIPARATIDE
     Indication: Osteoporosis
     Dosage: UNK
     Route: 065
     Dates: start: 20180711, end: 20180721
  13. BENEFIBER [Concomitant]
     Active Substance: STARCH, WHEAT
     Dosage: UNK
  14. PLAQUENIL [Concomitant]
     Active Substance: HYDROXYCHLOROQUINE SULFATE
     Dosage: UNK
  15. CLARITIN [Concomitant]
     Active Substance: LORATADINE
     Dosage: UNK
  16. ASACOL [Concomitant]
     Active Substance: MESALAMINE
     Dosage: 1.6 GRAM, QD
  17. CALCIUM\VITAMIN D [Concomitant]
     Active Substance: CALCIUM\VITAMIN D
     Dosage: UNK
  18. ASPIRIN [Concomitant]
     Active Substance: ASPIRIN
     Dosage: UNK
  19. PROLIA [Concomitant]
     Active Substance: DENOSUMAB
     Dosage: UNK UNK, MONTHLY
  20. Cortiment [Concomitant]
     Dosage: UNK
     Dates: start: 20170921
  21. CORTISONE [Concomitant]
     Active Substance: CORTISONE
     Dosage: UNK
  22. ASPIRIN [Concomitant]
     Active Substance: ASPIRIN
     Dosage: 81 MILLIGRAM, QD
  23. OMEGA 3 [Concomitant]
     Active Substance: CAPSAICIN
     Dosage: UNK

REACTIONS (27)
  - Rheumatoid arthritis [Recovered/Resolved]
  - Lower respiratory tract infection [Unknown]
  - COVID-19 [Recovered/Resolved]
  - Asthenia [Unknown]
  - Drug interaction [Unknown]
  - Respiratory tract congestion [Not Recovered/Not Resolved]
  - Parathyroid gland enlargement [Recovered/Resolved]
  - Cold sweat [Unknown]
  - Cheilitis [Unknown]
  - Restlessness [Unknown]
  - Oral herpes [Unknown]
  - Pain [Unknown]
  - Abdominal discomfort [Unknown]
  - Lethargy [Recovering/Resolving]
  - Influenza like illness [Unknown]
  - Off label use [Unknown]
  - Nasal congestion [Unknown]
  - Constipation [Recovering/Resolving]
  - Arthralgia [Not Recovered/Not Resolved]
  - Nasopharyngitis [Not Recovered/Not Resolved]
  - Influenza [Recovering/Resolving]
  - Cough [Not Recovered/Not Resolved]
  - Pyrexia [Unknown]
  - Fatigue [Not Recovered/Not Resolved]
  - Fall [Unknown]
  - Patella fracture [Unknown]
  - Headache [Recovered/Resolved]

NARRATIVE: CASE EVENT DATE: 20171101
